FAERS Safety Report 4734164-7 (Version None)
Quarter: 2005Q3

REPORT INFORMATION
  Report Type: 
  Country: None (occurrence: None)
  Receive Date: 20050729
  Receipt Date: 20050720
  Transmission Date: 20060218
  Serious: Yes (Hospitalization)
  Sender: FDA-Public Use
  Company Number: COV2-2005-00115

PATIENT
  Age: 75 Year
  Sex: Male
  Weight: 86.5 kg

DRUGS (13)
  1. FOSRENOL [Suspect]
     Indication: HYPERPHOSPHATAEMIA
     Dosage: 500 MG, 3X/DAY; TID, ORAL
     Route: 048
     Dates: start: 20050627, end: 20050702
  2. FOSRENOL [Suspect]
     Indication: HYPERPHOSPHATAEMIA
     Dosage: 500 MG, 3X/DAY; TID, ORAL
     Route: 048
     Dates: start: 20050706
  3. COMBIVENT [Concomitant]
  4. DULCOLAX (BISACODYL) TABLET [Concomitant]
  5. ENDOCET (OXYCODONE HYDROCHLORIDE) TABLET [Concomitant]
  6. HUMULIN (INSULIN HUMAN, INSULIN ISOPHANE, HUMAN BIOSYNTHETIC) INJECTIO [Concomitant]
  7. ISOSORBIDE (ISOSORBIDE) TABLET [Concomitant]
  8. METOCLOPRAMIDE (METOCLOPRAMIDE) TABLET [Concomitant]
  9. MIRALAX [Concomitant]
  10. NEXIUM [Concomitant]
  11. NITROGLYCERIN   NIHON KAYAKU (GLYCERYL TRINITRATE) PATCH [Concomitant]
  12. NORVASC [Concomitant]
  13. TOPROL XL (METOPROLOL SUCCINATE) TABLET [Concomitant]

REACTIONS (1)
  - PANCREATITIS [None]
